FAERS Safety Report 4778091-8 (Version None)
Quarter: 2005Q3

REPORT INFORMATION
  Report Type: 
  Country: None (occurrence: None)
  Receive Date: 20050926
  Receipt Date: 20050913
  Transmission Date: 20060218
  Serious: Yes (Other)
  Sender: FDA-Public Use
  Company Number: US-JNJFOC-20050901265

PATIENT
  Sex: Female
  Weight: 77.11 kg

DRUGS (10)
  1. REMICADE [Suspect]
     Route: 042
  2. REMICADE [Suspect]
     Route: 042
  3. REMICADE [Suspect]
     Indication: RHEUMATOID ARTHRITIS
     Route: 042
  4. IMURAN [Concomitant]
  5. PREDNISONE [Concomitant]
     Dosage: 5 MG - 7.5 MG DAILY
  6. HYDROCHLOROTHIAZIDE [Concomitant]
  7. LISINOPRIL [Concomitant]
  8. RANITIDINE [Concomitant]
  9. VITAMIN B6 [Concomitant]
  10. FOSAMAX [Concomitant]

REACTIONS (5)
  - BLOOD CREATININE INCREASED [None]
  - DIVERTICULITIS [None]
  - SEPSIS [None]
  - TUBERCULOSIS [None]
  - URINARY TRACT INFECTION [None]
